FAERS Safety Report 9885876 (Version 1)
Quarter: 2014Q1

REPORT INFORMATION
  Report Type: Spontaneous
  Country: US (occurrence: US)
  Receive Date: 20140210
  Receipt Date: 20140210
  Transmission Date: 20141002
  Serious: Yes (Other)
  Sender: FDA-Public Use
  Company Number: US-PFIZER INC-2014034177

PATIENT
  Sex: Male

DRUGS (1)
  1. VIAGRA [Suspect]
     Dosage: 100 MG, UNK

REACTIONS (7)
  - Prostate cancer [Unknown]
  - Cataract [Unknown]
  - Visual impairment [Unknown]
  - Headache [Unknown]
  - Nasal congestion [Unknown]
  - Dizziness [Unknown]
  - Drug ineffective [Unknown]
